FAERS Safety Report 17013466 (Version 1)
Quarter: 2019Q4

REPORT INFORMATION
  Report Type: Spontaneous
  Country: US (occurrence: US)
  Receive Date: 20191002
  Receipt Date: 20191002
  Transmission Date: 20200122
  Serious: Yes (Other)
  Sender: FDA-Public Use
  Company Number: None

PATIENT
  Sex: Female

DRUGS (10)
  1. ZOLPIDEM [Suspect]
     Active Substance: ZOLPIDEM TARTRATE
     Indication: INSOMNIA
     Dosage: ?          QUANTITY:10 MG MILLIGRAM(S);?
     Route: 048
     Dates: start: 1995
  2. ZOLPIDEM [Concomitant]
     Active Substance: ZOLPIDEM TARTRATE
  3. BENZTROPINE. [Concomitant]
     Active Substance: BENZTROPINE
  4. ZOLPIDEM [Suspect]
     Active Substance: ZOLPIDEM TARTRATE
     Indication: DEPRESSION
     Dosage: ?          QUANTITY:10 MG MILLIGRAM(S);?
     Route: 048
     Dates: start: 1995
  5. DULOXETINE HCL DR 60MG [Suspect]
     Active Substance: DULOXETINE HYDROCHLORIDE
     Dosage: ?          QUANTITY:60 MG MILLIGRAM(S);?
     Dates: start: 1995
  6. BUPROPION. [Concomitant]
     Active Substance: BUPROPION
  7. ACETAMINOPHEN COD [Concomitant]
  8. RISPERIDONE 3MG [Suspect]
     Active Substance: RISPERIDONE
     Indication: DEPRESSION
     Dosage: ?          QUANTITY:3 MG MILLIGRAM(S);?
     Dates: start: 1995
  9. OMERPRAZOLE [Concomitant]
     Active Substance: OMEPRAZOLE
  10. BANOPHEN [Concomitant]
     Active Substance: DIPHENHYDRAMINE HYDROCHLORIDE

REACTIONS (1)
  - Amnesia [None]
